FAERS Safety Report 7056735-8 (Version None)
Quarter: 2010Q4

REPORT INFORMATION
  Report Type: 
  Country: None (occurrence: None)
  Receive Date: 20101022
  Receipt Date: 20101015
  Transmission Date: 20110411
  Serious: Yes (Hospitalization, Other)
  Sender: FDA-Public Use
  Company Number: US-BIOGENIDEC-2005BI018531

PATIENT
  Sex: Female
  Weight: 55 kg

DRUGS (3)
  1. AVONEX [Suspect]
     Indication: MULTIPLE SCLEROSIS
     Route: 030
     Dates: start: 20010301, end: 20040901
  2. AVONEX [Suspect]
     Route: 030
     Dates: start: 20040901, end: 20091218
  3. AVONEX [Suspect]
     Route: 030
     Dates: start: 20100205

REACTIONS (7)
  - BLISTER [None]
  - NEOPLASM [None]
  - OROPHARYNGEAL BLISTERING [None]
  - OVARIAN CANCER [None]
  - OVARIAN CANCER RECURRENT [None]
  - PRURITUS [None]
  - VENOUS INJURY [None]
